FAERS Safety Report 13735375 (Version 1)
Quarter: 2017Q3

REPORT INFORMATION
  Report Type: Spontaneous
  Country: US (occurrence: US)
  Receive Date: 20170709
  Receipt Date: 20170709
  Transmission Date: 20171127
  Serious: Yes (Other)
  Sender: FDA-Public Use
  Company Number: None

PATIENT
  Age: 71 Year
  Sex: Female
  Weight: 72 kg

DRUGS (8)
  1. OMEPRAZOLE. [Concomitant]
     Active Substance: OMEPRAZOLE
  2. ZOLOFT [Concomitant]
     Active Substance: SERTRALINE HYDROCHLORIDE
  3. CALCIUM/MAGNESIUM [Concomitant]
  4. FISH OIL 3,6,9 [Concomitant]
  5. GARLIC OIL [Concomitant]
     Active Substance: GARLIC OIL
  6. DILTIAZEM HCL [Concomitant]
     Active Substance: DILTIAZEM HYDROCHLORIDE
  7. LORASEPAM [Concomitant]
  8. CIPROFLOXACIN HCL [Suspect]
     Active Substance: CIPROFLOXACIN HYDROCHLORIDE
     Indication: INFECTION PROPHYLAXIS
     Dosage: ?          OTHER STRENGTH:MG;QUANTITY:1 TABLET(S);?
     Route: 048
     Dates: start: 20170626, end: 20170628

REACTIONS (3)
  - Insomnia [None]
  - Skin discolouration [None]
  - Hallucination, visual [None]

NARRATIVE: CASE EVENT DATE: 20170626
